FAERS Safety Report 7585570-7 (Version None)
Quarter: 2011Q2

REPORT INFORMATION
  Report Type: 
  Country: None (occurrence: None)
  Receive Date: 20110628
  Receipt Date: 20110628
  Transmission Date: 20111010
  Serious: No
  Sender: FDA-Public Use
  Company Number: None

PATIENT
  Age: 68 Year
  Sex: Male
  Weight: 65.7716 kg

DRUGS (1)
  1. LANTUS [Suspect]

REACTIONS (6)
  - EMOTIONAL DISORDER [None]
  - COMA [None]
  - CEREBROVASCULAR ACCIDENT [None]
  - BLOOD GLUCOSE DECREASED [None]
  - DYSPHAGIA [None]
  - COGNITIVE DISORDER [None]
